FAERS Safety Report 13013711 (Version 3)
Quarter: 2017Q1

REPORT INFORMATION
  Report Type: Report from Study
  Country: US (occurrence: US)
  Receive Date: 20161209
  Receipt Date: 20170313
  Transmission Date: 20170428
  Serious: Yes (Hospitalization)
  Sender: FDA-Public Use
  Company Number: US-VERTEX PHARMACEUTICALS-2016-006822

PATIENT
  Age: 23 Year
  Sex: Female

DRUGS (11)
  1. ADVAIR HFA [Concomitant]
     Active Substance: FLUTICASONE PROPIONATE\SALMETEROL XINAFOATE
     Dosage: 250/50 ONE PUFF BID
  2. NASONEX [Concomitant]
     Active Substance: MOMETASONE FUROATE
     Dosage: QD
     Route: 045
  3. ALLEGRA [Concomitant]
     Active Substance: FEXOFENADINE HYDROCHLORIDE
     Dosage: 180 MG, QD
  4. PERCOCET [Concomitant]
     Active Substance: ACETAMINOPHEN\OXYCODONE HYDROCHLORIDE
     Dosage: 325/5MG QD PRN
     Route: 048
  5. OXYCODONE [Concomitant]
     Active Substance: OXYCODONE
     Dosage: 5 MG, PRN
  6. KALYDECO [Suspect]
     Active Substance: IVACAFTOR
     Indication: CYSTIC FIBROSIS
     Dosage: 150 MG, BID
     Route: 048
     Dates: start: 20141216, end: 201611
  7. AMBIEN [Concomitant]
     Active Substance: ZOLPIDEM TARTRATE
     Dosage: 5MG QHS
  8. AQUADEKS [Concomitant]
     Active Substance: MINERALS\VITAMINS
     Dosage: 1-2 TABLETS BID
  9. ONDANSETRON [Concomitant]
     Active Substance: ONDANSETRON
     Dosage: 4MG Q6HRS PRN UP TO 7 DAYS
  10. PROZAC [Concomitant]
     Active Substance: FLUOXETINE HYDROCHLORIDE
     Dosage: 20 MG, QD
  11. ABILIFY [Concomitant]
     Active Substance: ARIPIPRAZOLE

REACTIONS (5)
  - Abdominal pain [Unknown]
  - Hepatitis [Recovering/Resolving]
  - Transaminases increased [Unknown]
  - Acute sinusitis [Unknown]
  - Pancreatitis acute [Recovering/Resolving]

NARRATIVE: CASE EVENT DATE: 20161121
